FAERS Safety Report 8374905-3 (Version None)
Quarter: 2012Q2

REPORT INFORMATION
  Report Type: 
  Country: None (occurrence: None)
  Receive Date: 20120521
  Receipt Date: 20120515
  Transmission Date: 20120825
  Serious: Yes (Hospitalization, Other)
  Sender: FDA-Public Use
  Company Number: US-AMGEN-USASP2012014867

PATIENT
  Age: 76 Year
  Sex: Female

DRUGS (1)
  1. PROLIA [Suspect]
     Indication: OSTEOPOROSIS POSTMENOPAUSAL
     Dates: start: 20120227

REACTIONS (21)
  - CEREBRAL INFARCTION [None]
  - HYPERREFLEXIA [None]
  - EAR PAIN [None]
  - CONFUSIONAL STATE [None]
  - METABOLIC ACIDOSIS [None]
  - NASAL CONGESTION [None]
  - PYREXIA [None]
  - HYPERTENSION [None]
  - CAROTID ARTERY DISEASE [None]
  - CRYING [None]
  - WHITE BLOOD CELL COUNT INCREASED [None]
  - BLOOD ALBUMIN DECREASED [None]
  - DISORIENTATION [None]
  - TRANSIENT ISCHAEMIC ATTACK [None]
  - DYSARTHRIA [None]
  - COUGH [None]
  - RESPIRATORY ACIDOSIS [None]
  - DYSLIPIDAEMIA [None]
  - PNEUMONIA [None]
  - FRUSTRATION [None]
  - ARTHRITIS [None]
